FAERS Safety Report 9745693 (Version 3)
Quarter: 2014Q1

REPORT INFORMATION
  Report Type: Report from Study
  Country: US (occurrence: US)
  Receive Date: 20131211
  Receipt Date: 20140206
  Transmission Date: 20141002
  Serious: Yes (Other)
  Sender: FDA-Public Use
  Company Number: US-TEVA-449923USA

PATIENT
  Age: 24 Year
  Sex: Female

DRUGS (4)
  1. CLARAVIS [Suspect]
     Dosage: 40 MILLIGRAM DAILY;
     Dates: start: 20130909, end: 20131202
  2. BIRTH CONTROL PILL [Concomitant]
  3. MEDROL DOSE PACK [Concomitant]
     Dates: start: 20131115
  4. DIFLUCAN [Concomitant]

REACTIONS (1)
  - Unintended pregnancy [Unknown]
